FAERS Safety Report 9378965 (Version 2)
Quarter: 2013Q3

REPORT INFORMATION
  Report Type: Spontaneous
  Country: US (occurrence: US)
  Receive Date: 20130702
  Receipt Date: 20130911
  Transmission Date: 20140515
  Serious: Yes (Other)
  Sender: FDA-Public Use
  Company Number: US-SANOFI-AVENTIS-2013SA065966

PATIENT
  Age: 70 Year
  Sex: Female
  Weight: 103.41 kg

DRUGS (2)
  1. LANTUS [Suspect]
     Indication: DIABETES MELLITUS
     Route: 065
  2. PREDNISOLON [Concomitant]
     Route: 065

REACTIONS (1)
  - Renal disorder [Recovered/Resolved]
